FAERS Safety Report 15785819 (Version 1)
Quarter: 2018Q4

REPORT INFORMATION
  Report Type: Spontaneous
  Country: US (occurrence: US)
  Receive Date: 20181228
  Receipt Date: 20181228
  Transmission Date: 20190205
  Serious: No
  Sender: FDA-Public Use
  Company Number: None

PATIENT

DRUGS (2)
  1. KAPVAY [Suspect]
     Active Substance: CLONIDINE HYDROCHLORIDE
     Route: 048
  2. CLONIDINE. [Suspect]
     Active Substance: CLONIDINE

REACTIONS (2)
  - Intercepted product dispensing error [None]
  - Wrong dosage formulation [None]
